FAERS Safety Report 7247435-X (Version None)
Quarter: 2011Q1

REPORT INFORMATION
  Report Type: 
  Country: None (occurrence: None)
  Receive Date: 20110127
  Receipt Date: 20110124
  Transmission Date: 20110831
  Serious: Yes (Death)
  Sender: FDA-Public Use
  Company Number: PHHY2011CA03266

PATIENT
  Sex: Female

DRUGS (11)
  1. PREVACID [Concomitant]
     Dosage: UNK
     Dates: start: 20090101
  2. VITAMIN D [Concomitant]
     Dosage: UNK
     Dates: start: 20090101
  3. OXYCODONE HCL AND ACETAMINOPHEN [Concomitant]
     Dosage: UNK
     Dates: start: 20090101
  4. ACLASTA [Suspect]
     Indication: OSTEOPOROSIS
     Dosage: 5 MG/100 ML
     Route: 042
     Dates: start: 20090513
  5. TYLENOL-500 [Concomitant]
     Dosage: UNK
     Dates: start: 20090101
  6. OXYGEN THERAPY [Concomitant]
     Dosage: UNK
     Dates: start: 20090101
  7. ADVAIR [Concomitant]
     Dosage: UNK
     Dates: start: 20090101
  8. CALCIUM [Concomitant]
     Dosage: UNK
     Dates: start: 20090101
  9. SPIRIVA [Concomitant]
     Dosage: UNK
     Dates: start: 20090101
  10. VITAMIN B-12 [Concomitant]
     Dosage: UNK
     Dates: start: 20090101
  11. VENTOLIN [Concomitant]

REACTIONS (1)
  - DEATH [None]
